FAERS Safety Report 21762589 (Version 1)
Quarter: 2022Q4

REPORT INFORMATION
  Report Type: Spontaneous
  Country: IT (occurrence: IT)
  Receive Date: 20221221
  Receipt Date: 20221221
  Transmission Date: 20230112
  Serious: Yes (Other)
  Sender: FDA-Public Use
  Company Number: IT-MLMSERVICE-20220916-3799135-1

PATIENT
  Age: 35 Year
  Sex: Male

DRUGS (10)
  1. CISPLATIN [Suspect]
     Active Substance: CISPLATIN
     Indication: Extragonadal primary seminoma (pure)
     Dosage: 20MG/M2/DAY, D 1-5, EVERY 3 WEEKS, CYCLE
     Route: 065
  2. ENOXAPARIN SODIUM [Suspect]
     Active Substance: ENOXAPARIN SODIUM
     Indication: Axillary vein thrombosis
     Dosage: 100 INTERNATIONAL UNIT/KILOGRAM, BID
     Route: 065
  3. ENOXAPARIN SODIUM [Suspect]
     Active Substance: ENOXAPARIN SODIUM
     Indication: Subclavian vein thrombosis
     Dosage: 4000 INTERNATIONAL UNIT/KILOGRAM, BID
     Route: 065
  4. ENOXAPARIN SODIUM [Suspect]
     Active Substance: ENOXAPARIN SODIUM
     Indication: Jugular vein thrombosis
  5. ENOXAPARIN SODIUM [Suspect]
     Active Substance: ENOXAPARIN SODIUM
     Indication: Brachiocephalic vein thrombosis
  6. BLEOMYCIN [Suspect]
     Active Substance: BLEOMYCIN SULFATE
     Indication: Extragonadal primary seminoma (pure)
     Dosage: 30 UNITS/DAY, DAY 2, 9, 16, EVERY 3 WEEKS CYCLICAL
     Route: 065
  7. ETOPOSIDE [Suspect]
     Active Substance: ETOPOSIDE
     Indication: Extragonadal primary seminoma (pure)
     Dosage: 100MG/M2/DAY, D 1-5, EVERY 3 WEEKS, CYCLE
     Route: 065
  8. ESOMEPRAZOLE [Concomitant]
     Active Substance: ESOMEPRAZOLE
     Indication: Chronic gastritis
     Dosage: 40 MILLIGRAM, QD
     Route: 065
  9. ESOMEPRAZOLE [Concomitant]
     Active Substance: ESOMEPRAZOLE
     Indication: Oesophageal ulcer
  10. ESOMEPRAZOLE [Concomitant]
     Active Substance: ESOMEPRAZOLE
     Indication: Oesophagitis

REACTIONS (2)
  - Brachiocephalic vein thrombosis [Recovered/Resolved]
  - Treatment failure [Unknown]
